FAERS Safety Report 18144381 (Version 1)
Quarter: 2020Q3

REPORT INFORMATION
  Report Type: Spontaneous
  Country: CN (occurrence: CN)
  Receive Date: 20200813
  Receipt Date: 20200813
  Transmission Date: 20201103
  Serious: Yes (Hospitalization)
  Sender: FDA-Public Use
  Company Number: CN-ASTRAZENECA-2020SE99899

PATIENT
  Age: 22796 Day
  Sex: Male
  Weight: 68 kg

DRUGS (2)
  1. ASPIRIN. [Suspect]
     Active Substance: ASPIRIN
     Route: 048
     Dates: start: 20200505, end: 20200626
  2. TICAGRELOR. [Suspect]
     Active Substance: TICAGRELOR
     Route: 048
     Dates: start: 20200603, end: 20200626

REACTIONS (8)
  - Coronary artery disease [Unknown]
  - Gastrooesophageal reflux disease [Unknown]
  - Dizziness [Unknown]
  - Lower gastrointestinal haemorrhage [Unknown]
  - Haematemesis [Recovering/Resolving]
  - Chronic gastritis [Unknown]
  - Melaena [Recovering/Resolving]
  - Fatigue [Unknown]

NARRATIVE: CASE EVENT DATE: 20200626
